FAERS Safety Report 16637157 (Version 2)
Quarter: 2022Q1

REPORT INFORMATION
  Report Type: Spontaneous
  Country: US (occurrence: US)
  Receive Date: 20190726
  Receipt Date: 20220123
  Transmission Date: 20220423
  Serious: No
  Sender: FDA-Public Use
  Company Number: US-JNJFOC-20190626270

PATIENT
  Sex: Female

DRUGS (1)
  1. SPRAVATO [Suspect]
     Active Substance: ESKETAMINE
     Indication: Product used for unknown indication

REACTIONS (5)
  - Euphoric mood [Unknown]
  - Dysgeusia [Unknown]
  - Sedation [Unknown]
  - Nausea [Unknown]
  - Blood pressure increased [Unknown]
